FAERS Safety Report 6741234-0 (Version None)
Quarter: 2010Q2

REPORT INFORMATION
  Report Type: 
  Country: None (occurrence: None)
  Receive Date: 20100526
  Receipt Date: 20100518
  Transmission Date: 20101027
  Serious: Yes (Hospitalization)
  Sender: FDA-Public Use
  Company Number: JP-ASTRAZENECA-2010SE23062

PATIENT
  Sex: Male

DRUGS (7)
  1. KENZEN [Suspect]
     Indication: HYPERTENSION
     Route: 048
  2. KENZEN [Suspect]
     Route: 048
  3. TAMSULOSIN HCL [Suspect]
     Indication: PROSTATIC ADENOMA
     Route: 048
  4. PLAVIX [Concomitant]
     Indication: CAROTID ARTERY STENOSIS
     Route: 065
  5. PARIET [Concomitant]
     Indication: GASTROOESOPHAGEAL REFLUX DISEASE
     Route: 065
  6. TAHOR [Concomitant]
     Indication: DYSLIPIDAEMIA
     Route: 065
  7. AMLOR [Concomitant]
     Indication: HYPERTENSION
     Route: 065

REACTIONS (1)
  - ORTHOSTATIC HYPOTENSION [None]
